FAERS Safety Report 13731733 (Version 1)
Quarter: 2017Q3

REPORT INFORMATION
  Report Type: Spontaneous
  Country: US (occurrence: US)
  Receive Date: 20170707
  Receipt Date: 20170707
  Transmission Date: 20171127
  Serious: Yes (Hospitalization, Other)
  Sender: FDA-Public Use
  Company Number: US-ACORDA-ACO_139362_2017

PATIENT
  Age: 57 Year
  Sex: Male

DRUGS (9)
  1. ZANAFLEX [Suspect]
     Active Substance: TIZANIDINE HYDROCHLORIDE
     Dosage: 4 MG, Q 8 HRS
     Route: 065
  2. COLISTIN [Suspect]
     Active Substance: COLISTIN
     Indication: PSEUDOMONAS INFECTION
  3. MEROPENEM. [Suspect]
     Active Substance: MEROPENEM
     Indication: WOUND INFECTION
     Dosage: 1 G, Q 8 HRS
     Route: 042
  4. FLUCONAZOLE. [Suspect]
     Active Substance: FLUCONAZOLE
     Indication: WOUND INFECTION
     Dosage: 400 MG, QD
     Route: 048
  5. ZANAFLEX [Suspect]
     Active Substance: TIZANIDINE HYDROCHLORIDE
     Indication: MUSCLE RELAXANT THERAPY
     Dosage: 1 MG, QD (AT BEDTIME)
     Route: 065
  6. POLYMYXIN B. [Suspect]
     Active Substance: POLYMYXIN B
     Indication: PSEUDOMONAS INFECTION
     Dosage: 100 MG, Q 12 HRS
     Route: 042
  7. COLISTIN [Suspect]
     Active Substance: COLISTIN
     Indication: WOUND INFECTION
     Dosage: 3 MG/KG, QD DIVIDED INTO 2 DOSES
     Route: 042
  8. POLYMYXIN B. [Suspect]
     Active Substance: POLYMYXIN B
     Indication: WOUND INFECTION
     Dosage: 160 MG, LOADING DOSE
     Route: 042
  9. FLEXERIL [Suspect]
     Active Substance: CYCLOBENZAPRINE HYDROCHLORIDE
     Indication: MUSCLE SPASMS
     Dosage: 10 MG, TID (AS NEEDED)
     Route: 065

REACTIONS (7)
  - Hypokalaemia [Unknown]
  - Diaphragmatic paralysis [Unknown]
  - Movement disorder [Unknown]
  - Hypomagnesaemia [Unknown]
  - Eosinophil count increased [Unknown]
  - Blood creatinine increased [Unknown]
  - Impaired healing [Unknown]
